FAERS Safety Report 10219251 (Version 1)
Quarter: 2014Q2

REPORT INFORMATION
  Report Type: Spontaneous
  Country: IE (occurrence: None)
  Receive Date: 20140603
  Receipt Date: 20140603
  Transmission Date: 20141212
  Serious: Yes (Other)
  Sender: FDA-Public Use
  Company Number: 2014P1004556

PATIENT
  Age: 63 Year
  Sex: Female

DRUGS (1)
  1. ALENDRONATE [Suspect]
     Indication: OSTEOPOROSIS

REACTIONS (6)
  - Fall [None]
  - Femur fracture [None]
  - Scar [None]
  - Device failure [None]
  - Fracture nonunion [None]
  - Trendelenburg^s symptom [None]
